FAERS Safety Report 23268698 (Version 1)
Quarter: 2023Q4

REPORT INFORMATION
  Report Type: Report from Study
  Country: KR (occurrence: KR)
  Receive Date: 20231206
  Receipt Date: 20231206
  Transmission Date: 20240110
  Serious: Yes (Death, Other)
  Sender: FDA-Public Use
  Company Number: KR-BAYER-2020-121865

PATIENT
  Sex: Male

DRUGS (1)
  1. STIVARGA [Suspect]
     Active Substance: REGORAFENIB
     Indication: Colorectal cancer metastatic
     Dosage: UNK
     Route: 048

REACTIONS (9)
  - Colorectal cancer metastatic [Fatal]
  - Spinal muscular atrophy [Fatal]
  - Idiopathic partial epilepsy [Fatal]
  - Seizure [Fatal]
  - Diabetic neuropathy [Fatal]
  - Ankylosing spondylitis [Fatal]
  - Gastrooesophageal reflux disease [Fatal]
  - Oesophagitis [Fatal]
  - Off label use [None]
